FAERS Safety Report 19361235 (Version 5)
Quarter: 2022Q1

REPORT INFORMATION
  Report Type: Report from Study
  Country: DE (occurrence: DE)
  Receive Date: 20210601
  Receipt Date: 20220209
  Transmission Date: 20220423
  Serious: Yes (Other)
  Sender: FDA-Public Use
  Company Number: DE-PFIZER INC-2021611001

PATIENT
  Age: 55 Year
  Sex: Female
  Weight: 83.6 kg

DRUGS (4)
  1. GEMTUZUMAB OZOGAMICIN [Suspect]
     Active Substance: GEMTUZUMAB OZOGAMICIN
     Indication: Acute myeloid leukaemia
     Dosage: 4.5 MG (3 MG/M2), QD ON DAY 1 AND DAY 4
     Route: 042
     Dates: start: 20210514
  2. MIDOSTAURIN [Suspect]
     Active Substance: MIDOSTAURIN
     Indication: Acute myeloid leukaemia
     Dosage: 50 MG BID DAYS 8-21
     Route: 048
     Dates: start: 20210521, end: 20210526
  3. CYTARABINE [Concomitant]
     Active Substance: CYTARABINE
     Indication: Acute myeloid leukaemia
     Dosage: 370 MG (200 MG/M2), OVER 7 DAYS
     Route: 042
     Dates: start: 20210514
  4. DAUNORUBICIN [Concomitant]
     Active Substance: DAUNORUBICIN
     Indication: Acute myeloid leukaemia
     Dosage: 111 MG  (60 MG/M2) ON 3 DAYS
     Route: 042
     Dates: start: 20210514

REACTIONS (1)
  - Venoocclusive liver disease [Recovered/Resolved]

NARRATIVE: CASE EVENT DATE: 20210526
